FAERS Safety Report 26103999 (Version 2)
Quarter: 2025Q4

REPORT INFORMATION
  Report Type: Spontaneous
  Country: JP (occurrence: JP)
  Receive Date: 20251129
  Receipt Date: 20251215
  Transmission Date: 20260118
  Serious: Yes (Hospitalization, Other)
  Sender: UCB
  Company Number: JP-UCBJ-CD202515439UCBPHAPROD

PATIENT
  Age: 6 Decade

DRUGS (15)
  1. BIMZELX [Suspect]
     Active Substance: BIMEKIZUMAB-BKZX
     Indication: Hidradenitis
     Dosage: UNK
  2. BIMZELX [Suspect]
     Active Substance: BIMEKIZUMAB-BKZX
     Indication: Ankylosing spondylitis
  3. CIMZIA [Concomitant]
     Active Substance: CERTOLIZUMAB PEGOL
     Indication: Product used for unknown indication
  4. HUMIRA [Concomitant]
     Active Substance: ADALIMUMAB
     Indication: Hidradenitis
  5. HUMIRA [Concomitant]
     Active Substance: ADALIMUMAB
     Indication: Ankylosing spondylitis
     Dosage: UNK
  6. CYCLOSPORINE [Concomitant]
     Active Substance: CYCLOSPORINE
     Indication: Product used for unknown indication
  7. RINVOQ [Concomitant]
     Active Substance: UPADACITINIB
     Indication: Product used for unknown indication
  8. TRAMCET [Concomitant]
     Active Substance: ACETAMINOPHEN\TRAMADOL
     Indication: Product used for unknown indication
  9. LYRICA [Concomitant]
     Active Substance: PREGABALIN
     Indication: Product used for unknown indication
  10. DESLORATADINE [Concomitant]
     Active Substance: DESLORATADINE
     Indication: Product used for unknown indication
  11. PREDNISOLONE [Concomitant]
     Active Substance: PREDNISOLONE
     Indication: Dermatitis psoriasiform
     Dosage: 30 MILLIGRAM
  12. PREDNISOLONE [Concomitant]
     Active Substance: PREDNISOLONE
     Dosage: 60 MILLIGRAM
  13. PREDNISOLONE [Concomitant]
     Active Substance: PREDNISOLONE
     Dosage: 80 MILLIGRAM
  14. ITRACONAZOLE [Concomitant]
     Active Substance: ITRACONAZOLE
     Indication: Fungal skin infection
  15. FLUCONAZOLE [Concomitant]
     Active Substance: FLUCONAZOLE
     Indication: Erythema

REACTIONS (7)
  - Dermatitis psoriasiform [Unknown]
  - Erysipelas [Unknown]
  - Ankylosing spondylitis [Unknown]
  - Paradoxical drug reaction [Unknown]
  - Fungal skin infection [Unknown]
  - Erythema [Unknown]
  - Product ineffective [Unknown]
